FAERS Safety Report 9557942 (Version 1)
Quarter: 2013Q3

REPORT INFORMATION
  Report Type: Spontaneous
  Country: US (occurrence: None)
  Receive Date: 20130724
  Receipt Date: 20130724
  Transmission Date: 20140515
  Serious: Yes (Hospitalization)
  Sender: FDA-Public Use
  Company Number: PHEH2012US017999

PATIENT
  Age: 79 Year
  Sex: Female

DRUGS (5)
  1. DIOVAN HCT [Suspect]
     Dosage: 1 DF (320 MG VAL/25 MG HCT)
  2. METOPROLOL [Suspect]
  3. GABAPENTIN [Concomitant]
  4. PANTOPRAZOLE [Concomitant]
  5. LEVOTHYROXINE [Concomitant]

REACTIONS (3)
  - Blood pressure increased [None]
  - Rosacea [None]
  - Limb discomfort [None]
